FAERS Safety Report 5493057-0 (Version None)
Quarter: 2007Q4

REPORT INFORMATION
  Report Type: 
  Country: None (occurrence: None)
  Receive Date: 20071017
  Receipt Date: 20071005
  Transmission Date: 20080405
  Serious: Yes (Other)
  Sender: FDA-Public Use
  Company Number: 2007332596

PATIENT
  Age: 37 Year
  Sex: Female
  Weight: 81.6475 kg

DRUGS (3)
  1. LISTERINE WHITENING QUICK DISSOLVING STRIPS (NO ACTIVE INGREDIENT) [Suspect]
     Dosage: ONCE; ORAL
     Route: 048
     Dates: start: 20071004, end: 20071004
  2. OXYCONTIN [Concomitant]
  3. MORPHINE [Concomitant]

REACTIONS (1)
  - TOOTHACHE [None]
